FAERS Safety Report 6610771-1 (Version None)
Quarter: 2010Q1

REPORT INFORMATION
  Report Type: 
  Country: None (occurrence: None)
  Receive Date: 20100302
  Receipt Date: 20100219
  Transmission Date: 20100710
  Serious: Yes (Other)
  Sender: FDA-Public Use
  Company Number: B0635068A

PATIENT
  Sex: Male

DRUGS (1)
  1. KIVEXA [Suspect]
     Indication: HIV INFECTION
     Dosage: 1TAB PER DAY
     Route: 065
     Dates: start: 20040101

REACTIONS (2)
  - MYELOFIBROSIS [None]
  - NEUTROPHIL COUNT DECREASED [None]
